FAERS Safety Report 11391912 (Version 1)
Quarter: 2015Q3

REPORT INFORMATION
  Report Type: Spontaneous
  Country: JP (occurrence: None)
  Receive Date: 20150814
  Receipt Date: 20150814
  Transmission Date: 20151125
  Serious: Yes (Hospitalization)
  Sender: FDA-Public Use
  Company Number: 2015-001618

PATIENT
  Age: 73 Year
  Sex: Female

DRUGS (2)
  1. DIDRONEL [Suspect]
     Active Substance: ETIDRONATE DISODIUM
     Indication: OSTEOPOROSIS
     Route: 048
     Dates: start: 200601, end: 200711
  2. FOSAMAC (ALENDRONATE SODIUM) 5MG [Suspect]
     Active Substance: ALENDRONATE SODIUM
     Indication: OSTEOPOROSIS
     Route: 048
     Dates: start: 200203, end: 200504

REACTIONS (7)
  - Actinomycosis [None]
  - Purulent discharge [None]
  - Sinusitis [None]
  - Osteomyelitis [None]
  - Bacterial infection [None]
  - Primary sequestrum [None]
  - Inflammation [None]

NARRATIVE: CASE EVENT DATE: 200507
